FAERS Safety Report 9663496 (Version 1)
Quarter: 2013Q4

REPORT INFORMATION
  Report Type: Spontaneous
  Country: US (occurrence: US)
  Receive Date: 20131101
  Receipt Date: 20131101
  Transmission Date: 20140711
  Serious: Yes (Hospitalization, Other)
  Sender: FDA-Public Use
  Company Number: US-AMGEN-USASP2013076725

PATIENT
  Age: 78 Year
  Sex: Female

DRUGS (1)
  1. ENBREL [Suspect]
     Indication: RHEUMATOID ARTHRITIS
     Dosage: 50 MG, QWK
     Route: 065
     Dates: start: 20130101

REACTIONS (4)
  - Blood sodium decreased [Recovered/Resolved]
  - Blood sodium abnormal [Recovered/Resolved]
  - Spinal fusion surgery [Recovered/Resolved]
  - Arthropathy [Recovered/Resolved]
